FAERS Safety Report 25210365 (Version 3)
Quarter: 2025Q2

REPORT INFORMATION
  Report Type: Report from Study
  Country: CA (occurrence: CA)
  Receive Date: 20250417
  Receipt Date: 20250520
  Transmission Date: 20250716
  Serious: Yes (Other)
  Sender: TAKEDA
  Company Number: CA-TAKEDA-2025TUS036620

PATIENT
  Sex: Female

DRUGS (4)
  1. VEDOLIZUMAB [Suspect]
     Active Substance: VEDOLIZUMAB
     Indication: Colitis ulcerative
     Dosage: UNK, Q4WEEKS
     Dates: start: 2023
  2. MESALAMINE [Suspect]
     Active Substance: MESALAMINE
     Indication: Colitis ulcerative
     Dosage: 4.8 GRAM, QD
  3. ROSUVASTATIN [Concomitant]
     Active Substance: ROSUVASTATIN
  4. MESALAMINE [Concomitant]
     Active Substance: MESALAMINE
     Dosage: 1000 MILLIGRAM, BID
     Dates: start: 20250411

REACTIONS (8)
  - Colitis ulcerative [Unknown]
  - Drug ineffective [Unknown]
  - Lung disorder [Unknown]
  - Osteopenia [Unknown]
  - Irritable bowel syndrome [Unknown]
  - Abdominal discomfort [Recovered/Resolved]
  - Abdominal pain [Unknown]
  - Haemorrhoids [Unknown]
